FAERS Safety Report 6083693-5 (Version None)
Quarter: 2009Q1

REPORT INFORMATION
  Report Type: 
  Country: None (occurrence: None)
  Receive Date: 20090217
  Receipt Date: 20090203
  Transmission Date: 20090719
  Serious: Yes (Hospitalization)
  Sender: FDA-Public Use
  Company Number: 2009S1002020

PATIENT
  Age: 35 Year
  Sex: Female

DRUGS (1)
  1. FENTANYL TRANSDERMAL SYSTEM [Suspect]
     Indication: PAIN
     Dosage: 100 UG;  EMPTYING HOUR; TRANSDERMAL
     Route: 062
     Dates: start: 20090128

REACTIONS (2)
  - ACCIDENTAL OVERDOSE [None]
  - UNRESPONSIVE TO STIMULI [None]
